APPROVED DRUG PRODUCT: FENTANYL CITRATE
Active Ingredient: FENTANYL CITRATE
Strength: EQ 0.6MG BASE
Dosage Form/Route: TROCHE/LOZENGE;TRANSMUCOSAL
Application: A077312 | Product #003
Applicant: PAR PHARMACEUTICAL INC
Approved: Oct 30, 2009 | RLD: No | RS: No | Type: DISCN